FAERS Safety Report 5681673-2 (Version None)
Quarter: 2008Q1

REPORT INFORMATION
  Report Type: 
  Country: None (occurrence: None)
  Receive Date: 20080326
  Receipt Date: 20070228
  Transmission Date: 20080703
  Serious: No
  Sender: FDA-Public Use
  Company Number: US-BAYER-US-2007-007326

PATIENT
  Age: 30 Year
  Sex: Female
  Weight: 64 kg

DRUGS (4)
  1. MIRENA [Suspect]
     Indication: CONTRACEPTION
     Route: 015
     Dates: start: 20040701
  2. LISINOPRIL [Concomitant]
     Indication: HYPERTENSION
     Dosage: UNIT DOSE: 10 MG
     Route: 048
     Dates: start: 20040801
  3. HYDROCHLOROTHIAZIDE [Concomitant]
     Indication: HYPERTENSION
     Dosage: UNIT DOSE: 12.5 MG
     Route: 048
     Dates: start: 20010101
  4. PANMIST LA [Concomitant]
     Route: 048
     Dates: start: 20061001

REACTIONS (7)
  - CERVICAL DYSPLASIA [None]
  - LIBIDO DECREASED [None]
  - METRORRHAGIA [None]
  - MOOD SWINGS [None]
  - OVARIAN CYST [None]
  - PAPILLOMA VIRAL INFECTION [None]
  - WEIGHT INCREASED [None]
